FAERS Safety Report 15461743 (Version 1)
Quarter: 2018Q4

REPORT INFORMATION
  Report Type: Spontaneous
  Country: US (occurrence: US)
  Receive Date: 20181003
  Receipt Date: 20181003
  Transmission Date: 20190204
  Serious: No
  Sender: FDA-Public Use
  Company Number: US-AMGEN-USASP2018089058

PATIENT

DRUGS (2)
  1. VECTIBIX [Suspect]
     Active Substance: PANITUMUMAB
     Indication: PRODUCT USED FOR UNKNOWN INDICATION
     Dosage: 470 MG, UNK (PREPARED USING A COMBINATION OF 1 VIAL OF 400 MG + 1 VIAL OF 100 MG)
     Route: 065
  2. VECTIBIX [Suspect]
     Active Substance: PANITUMUMAB
     Dosage: 470 MG, UNK (PREPARED USING A COMBINATION OF 1 VIAL OF 400 MG + 1 VIAL OF 100 MG)
     Route: 065

REACTIONS (2)
  - Laboratory test abnormal [Unknown]
  - Product preparation issue [Unknown]
